FAERS Safety Report 12196519 (Version 1)
Quarter: 2016Q1

REPORT INFORMATION
  Report Type: Spontaneous
  Country: JP (occurrence: JP)
  Receive Date: 20160321
  Receipt Date: 20160321
  Transmission Date: 20160526
  Serious: Yes (Other)
  Sender: FDA-Public Use
  Company Number: JP-MALLINCKRODT-T201505123

PATIENT
  Age: 53 Year
  Sex: Male
  Weight: 75 kg

DRUGS (26)
  1. CELECOX [Concomitant]
     Active Substance: CELECOXIB
     Indication: ANALGESIC THERAPY
     Dosage: 200 MG
     Route: 048
     Dates: start: 20150421
  2. METHADONE [Suspect]
     Active Substance: METHADONE HYDROCHLORIDE
     Dosage: 5MG, 15 MG DAILY DOSE
     Route: 048
     Dates: start: 20150331, end: 20150413
  3. METHADONE [Suspect]
     Active Substance: METHADONE HYDROCHLORIDE
     Dosage: 15MG, 30 MG DAILY DOSE
     Route: 048
     Dates: start: 20150507
  4. RIVOTRIL [Concomitant]
     Active Substance: CLONAZEPAM
     Indication: ANALGESIC THERAPY
     Dosage: 0.5 MG
     Route: 065
  5. MAGMITT [Concomitant]
     Active Substance: MAGNESIUM OXIDE
     Dosage: 1980 M,G
     Route: 048
  6. TSUMURA CHOREITO [Concomitant]
     Active Substance: UNSPECIFIED INGREDIENT
     Dosage: 7.5 G
     Route: 048
  7. XELODA [Concomitant]
     Active Substance: CAPECITABINE
     Dosage: 3600 MG
     Route: 048
  8. ALOXI [Concomitant]
     Active Substance: PALONOSETRON HYDROCHLORIDE
     Dosage: 0.75 MG
     Route: 051
     Dates: start: 20150324, end: 20150324
  9. METHADONE [Suspect]
     Active Substance: METHADONE HYDROCHLORIDE
     Indication: CANCER PAIN
     Dosage: 5 MG (15 MG DAILY DOSE)
     Route: 048
     Dates: start: 20150324, end: 20150326
  10. PA [Concomitant]
     Active Substance: ASPIRIN\CAFFEINE\PROMETHAZINE\SALICYLAMIDE
     Dosage: 1 DF
     Route: 048
  11. CRAVIT [Concomitant]
     Active Substance: LEVOFLOXACIN
     Dosage: 500 MG
     Route: 048
     Dates: start: 20150324, end: 20150326
  12. RESTAMIN [Concomitant]
     Active Substance: DIPHENHYDRAMINE
     Dosage: 50 MG
     Route: 048
     Dates: start: 20150324, end: 20150324
  13. ELPLAT [Concomitant]
     Active Substance: OXALIPLATIN
     Indication: PRODUCT USED FOR UNKNOWN INDICATION
     Dosage: 150 MG
     Route: 051
     Dates: start: 20150324, end: 20150324
  14. LYRICA [Concomitant]
     Active Substance: PREGABALIN
     Indication: ANALGESIC THERAPY
     Dosage: 150 MG
     Route: 065
  15. FUROSEMIDE. [Concomitant]
     Active Substance: FUROSEMIDE
     Dosage: 20 MG
     Route: 048
  16. BESACOLIN [Concomitant]
     Active Substance: BETHANECHOL CHLORIDE
     Dosage: 45 MG
     Route: 048
  17. GASTER [Concomitant]
     Active Substance: FAMOTIDINE
     Dosage: 20 MG
     Route: 048
  18. DECADRON [Concomitant]
     Active Substance: DEXAMETHASONE
     Dosage: 13.2 MG
     Route: 051
     Dates: start: 20150324, end: 20150324
  19. METHADONE [Suspect]
     Active Substance: METHADONE HYDROCHLORIDE
     Dosage: 10MG, 20 MG DAILY DOSE
     Route: 048
     Dates: start: 20150414, end: 20150506
  20. LENDORMIN [Suspect]
     Active Substance: BROTIZOLAM
     Indication: PRODUCT USED FOR UNKNOWN INDICATION
     Dosage: 0.25 MG
     Route: 048
  21. OPSO [Concomitant]
     Active Substance: MORPHINE HYDROCHLORIDE
     Indication: ANALGESIC THERAPY
     Dosage: 10 MG, PRN
     Route: 048
     Dates: start: 20150316
  22. APLACE [Concomitant]
     Active Substance: TROXIPIDE
     Dosage: 300 MG
     Route: 048
  23. AVASTIN [Concomitant]
     Active Substance: BEVACIZUMAB
     Dosage: 400 MG
     Route: 051
     Dates: start: 20150324, end: 20150324
  24. METHADONE [Suspect]
     Active Substance: METHADONE HYDROCHLORIDE
     Dosage: 5 MG (10 MG DAILY DOSE)
     Route: 048
     Dates: start: 20150327, end: 20150331
  25. MYSLEE [Suspect]
     Active Substance: ZOLPIDEM TARTRATE
     Indication: PRODUCT USED FOR UNKNOWN INDICATION
     Dosage: 10 MG
     Route: 048
  26. ENSURE [Concomitant]
     Active Substance: AMINO ACIDS\DEXTROSE\ELECTROLYTES NOS\SOYBEAN OIL\VITAMINS
     Dosage: 500 ML
     Route: 048

REACTIONS (3)
  - Delirium [Not Recovered/Not Resolved]
  - Hyperkalaemia [Recovered/Resolved]
  - Somnolence [Recovered/Resolved]

NARRATIVE: CASE EVENT DATE: 20150328
